FAERS Safety Report 8225005-4 (Version None)
Quarter: 2012Q1

REPORT INFORMATION
  Report Type: 
  Country: None (occurrence: None)
  Receive Date: 20120319
  Receipt Date: 20120301
  Transmission Date: 20120608
  Serious: Yes (Hospitalization)
  Sender: FDA-Public Use
  Company Number: DSA_55679_2012

PATIENT
  Age: 32 Year
  Sex: Male

DRUGS (2)
  1. FLAGYL [Suspect]
     Indication: TOOTH ABSCESS
     Dosage: (1 DF 1X ORAL)
     Route: 048
     Dates: start: 20111108, end: 20111108
  2. AMOXICILLIN TRIHYDRATE [Suspect]
     Indication: TOOTH ABSCESS
     Dosage: (1 DF 1X ORAL)
     Route: 048
     Dates: start: 20111108, end: 20111108

REACTIONS (1)
  - ANAPHYLACTIC SHOCK [None]
